FAERS Safety Report 17472155 (Version 2)
Quarter: 2020Q1

REPORT INFORMATION
  Report Type: Spontaneous
  Country: US (occurrence: US)
  Receive Date: 20200228
  Receipt Date: 20200303
  Transmission Date: 20200409
  Serious: Yes (Other)
  Sender: FDA-Public Use
  Company Number: US-ROCHE-2553728

PATIENT
  Sex: Female
  Weight: 93.07 kg

DRUGS (9)
  1. LASIX [Concomitant]
     Active Substance: FUROSEMIDE
  2. VICTOZA [Concomitant]
     Active Substance: LIRAGLUTIDE
  3. TYLENOL [Concomitant]
     Active Substance: ACETAMINOPHEN
     Indication: ARTHRITIS
  4. CLONAZEPAM. [Concomitant]
     Active Substance: CLONAZEPAM
  5. BIOTIN [Concomitant]
     Active Substance: BIOTIN
  6. OCREVUS [Suspect]
     Active Substance: OCRELIZUMAB
     Indication: RELAPSING MULTIPLE SCLEROSIS
     Dosage: LAST DOSE: OCT/2019
     Route: 042
     Dates: start: 20170825
  7. MODAFINIL. [Concomitant]
     Active Substance: MODAFINIL
  8. LISINOPRIL. [Concomitant]
     Active Substance: LISINOPRIL
  9. VITAMIN D3 [Concomitant]
     Active Substance: CHOLECALCIFEROL

REACTIONS (1)
  - Malignant melanoma [Unknown]
